FAERS Safety Report 17285098 (Version 1)
Quarter: 2020Q1

REPORT INFORMATION
  Report Type: Spontaneous
  Country: US (occurrence: US)
  Receive Date: 20200117
  Receipt Date: 20200117
  Transmission Date: 20200409
  Serious: No
  Sender: FDA-Public Use
  Company Number: US-TARO-2019TAR00338

PATIENT
  Sex: Female

DRUGS (2)
  1. DESOXIMETASONE CREAM USP 0.05% [Suspect]
     Active Substance: DESOXIMETASONE
     Indication: RASH
     Dosage: UNK, ONCE
     Route: 047
     Dates: start: 20190423, end: 20190423
  2. DESOXIMETASONE CREAM USP 0.05% [Suspect]
     Active Substance: DESOXIMETASONE
     Dosage: UNK
     Route: 061

REACTIONS (2)
  - Eye pain [Recovered/Resolved]
  - Exposure via eye contact [Recovered/Resolved]

NARRATIVE: CASE EVENT DATE: 20190423
